FAERS Safety Report 12654666 (Version 1)
Quarter: 2016Q3

REPORT INFORMATION
  Report Type: Spontaneous
  Country: US (occurrence: US)
  Receive Date: 20160816
  Receipt Date: 20160816
  Transmission Date: 20161109
  Serious: Yes (Death)
  Sender: FDA-Public Use
  Company Number: US-TOLMAR, INC.-2015US011566

PATIENT
  Age: 76 Year
  Sex: Male

DRUGS (6)
  1. ZYTIGA [Concomitant]
     Active Substance: ABIRATERONE ACETATE
     Dosage: 250 MG, UNK
     Route: 065
  2. XTANDI [Suspect]
     Active Substance: ENZALUTAMIDE
     Indication: HORMONE-REFRACTORY PROSTATE CANCER
     Dosage: 160 MG, ONCE DAILY
     Route: 065
     Dates: start: 20140810, end: 20160808
  3. METOPROLOL. [Concomitant]
     Active Substance: METOPROLOL
     Dosage: 50 MG, UNK
     Route: 065
  4. SIMVASTATIN. [Concomitant]
     Active Substance: SIMVASTATIN
     Dosage: 20 MG, UNK
     Route: 065
  5. FLUTAMIDE. [Concomitant]
     Active Substance: FLUTAMIDE
     Dosage: 125 MG, UNK
     Route: 065
  6. ELIGARD [Suspect]
     Active Substance: LEUPROLIDE ACETATE
     Indication: PRODUCT USED FOR UNKNOWN INDICATION
     Dosage: UNK
     Route: 065
     Dates: start: 2012, end: 201507

REACTIONS (4)
  - Death [Fatal]
  - Hyperhidrosis [Not Recovered/Not Resolved]
  - Muscular weakness [Not Recovered/Not Resolved]
  - Fatigue [Not Recovered/Not Resolved]

NARRATIVE: CASE EVENT DATE: 201504
